FAERS Safety Report 9732590 (Version 2)
Quarter: 2014Q1

REPORT INFORMATION
  Report Type: Spontaneous
  Country: US (occurrence: US)
  Receive Date: 20131205
  Receipt Date: 20140101
  Transmission Date: 20141002
  Serious: No
  Sender: FDA-Public Use
  Company Number: US-009507513-1312USA001171

PATIENT
  Age: 60 Year
  Sex: Female

DRUGS (6)
  1. PEGINTRON [Suspect]
     Indication: HEPATITIS C
     Dosage: UNK
     Dates: start: 20070105, end: 20070406
  2. PEGINTRON [Suspect]
     Dosage: 0.5 ML, ONCE A WEEK, REDIPEN
     Route: 058
     Dates: start: 20131129
  3. REBETOL [Suspect]
     Indication: HEPATITIS C
     Dosage: UNK
     Route: 048
     Dates: start: 20070105, end: 20070406
  4. REBETOL [Suspect]
     Dosage: 400 MG, TWICE A DAY
     Route: 048
     Dates: start: 20131129
  5. BENAZEPRIL HYDROCHLORIDE [Concomitant]
     Dosage: 20 MG, QD
     Route: 048
  6. HYDROCHLOROTHIAZIDE [Concomitant]
     Dosage: 25 MG, QD
     Route: 048

REACTIONS (11)
  - Nervousness [Unknown]
  - Nervousness [Unknown]
  - Sluggishness [Unknown]
  - Decreased appetite [Unknown]
  - Nausea [Unknown]
  - Nausea [Unknown]
  - Fatigue [Unknown]
  - Vomiting [Unknown]
  - Drug ineffective [Unknown]
  - Inappropriate schedule of drug administration [Unknown]
  - Inappropriate schedule of drug administration [Unknown]
